FAERS Safety Report 8101712-9 (Version None)
Quarter: 2012Q1

REPORT INFORMATION
  Report Type: 
  Country: None (occurrence: None)
  Receive Date: 20120131
  Receipt Date: 20120125
  Transmission Date: 20120608
  Serious: Yes (Death)
  Sender: FDA-Public Use
  Company Number: US-ALLERGAN-1201125US

PATIENT
  Age: 1 Hour

DRUGS (1)
  1. LATISSE [Suspect]
     Indication: MATERNAL EXPOSURE TIMING UNSPECIFIED
     Dosage: 2 GTT, QHS
     Route: 064
     Dates: start: 20110201, end: 20110701

REACTIONS (2)
  - BACTERIAL INFECTION [None]
  - PREMATURE BABY [None]
